FAERS Safety Report 24031184 (Version 3)
Quarter: 2024Q3

REPORT INFORMATION
  Report Type: Report from Study
  Country: US (occurrence: US)
  Receive Date: 20240629
  Receipt Date: 20240801
  Transmission Date: 20241017
  Serious: Yes (Hospitalization, Other)
  Sender: ABBVIE
  Company Number: US-ABBVIE-5817512

PATIENT
  Sex: Male

DRUGS (1)
  1. RINVOQ [Suspect]
     Active Substance: UPADACITINIB
     Indication: Product used for unknown indication
     Dosage: LAST ADMIN DATE WAS 2024
     Route: 048
     Dates: start: 20240131

REACTIONS (3)
  - Condition aggravated [Unknown]
  - Ileostomy [Not Recovered/Not Resolved]
  - Colostomy [Unknown]

NARRATIVE: CASE EVENT DATE: 20240101
